FAERS Safety Report 16584767 (Version 1)
Quarter: 2019Q3

REPORT INFORMATION
  Report Type: Report from Study
  Country: ID (occurrence: ID)
  Receive Date: 20190717
  Receipt Date: 20190717
  Transmission Date: 20191004
  Serious: Yes (Other)
  Sender: FDA-Public Use
  Company Number: ID-ASTRAZENECA-2019SE94236

PATIENT
  Age: 24512 Day
  Sex: Male

DRUGS (2)
  1. TAGRISSO [Suspect]
     Active Substance: OSIMERTINIB
     Indication: NON-SMALL CELL LUNG CANCER
     Route: 048
     Dates: start: 20190601
  2. TAGRISSO [Suspect]
     Active Substance: OSIMERTINIB
     Indication: NON-SMALL CELL LUNG CANCER
     Dosage: 80 MG IS TAKEN ONCE PER TWO DAYS
     Route: 048
     Dates: start: 20190615

REACTIONS (9)
  - Dry mouth [Unknown]
  - Dry throat [Unknown]
  - Dry skin [Unknown]
  - Blood glucose increased [Unknown]
  - Asthenia [Unknown]
  - Decreased appetite [Unknown]
  - Renal disorder [Unknown]
  - Lacrimation increased [Unknown]
  - Ageusia [Unknown]

NARRATIVE: CASE EVENT DATE: 20190614
